FAERS Safety Report 10073313 (Version 1)
Quarter: 2014Q2

REPORT INFORMATION
  Report Type: Spontaneous
  Country: FR (occurrence: FR)
  Receive Date: 20140411
  Receipt Date: 20140411
  Transmission Date: 20141212
  Serious: Yes (Other)
  Sender: FDA-Public Use
  Company Number: FR-GLAXOSMITHKLINE-B0985122A

PATIENT
  Age: 57 Year
  Sex: Male

DRUGS (1)
  1. ALKERAN [Suspect]
     Indication: TRANSPLANT
     Dosage: 365MG PER DAY
     Route: 042
     Dates: start: 20140310, end: 20140310

REACTIONS (2)
  - Injection site pain [Recovered/Resolved]
  - Injection site joint inflammation [Recovered/Resolved]
